FAERS Safety Report 6429245-6 (Version None)
Quarter: 2009Q4

REPORT INFORMATION
  Report Type: 
  Country: None (occurrence: None)
  Receive Date: 20091105
  Receipt Date: 20091023
  Transmission Date: 20100525
  Serious: Yes (Other)
  Sender: FDA-Public Use
  Company Number: PHHY2009ZA46356

PATIENT
  Age: 51 Year
  Sex: Male

DRUGS (6)
  1. VALSARTAN AND HYDROCHLOROTHIAZIDE [Suspect]
     Dosage: 80/12.5 MG DAILY
     Dates: start: 20090501
  2. VALSARTAN AND HYDROCHLOROTHIAZIDE [Suspect]
     Dosage: 80/12.5 MG TWICE A DAY
  3. VALSARTAN AND HYDROCHLOROTHIAZIDE [Suspect]
     Dosage: 80/12.5MG DAILY
     Dates: start: 20090624
  4. EPILIM [Concomitant]
     Dosage: 500 MG, BID
  5. GLUCOPHAGE [Concomitant]
     Indication: DIABETES MELLITUS
     Dosage: 500 MG, BID
     Dates: start: 20060101
  6. SIMVASTATIN [Concomitant]
     Indication: BLOOD CHOLESTEROL INCREASED
     Dosage: 20 MG, UNK
     Dates: start: 20060101

REACTIONS (5)
  - ABASIA [None]
  - BLOOD PRESSURE INADEQUATELY CONTROLLED [None]
  - CONVULSION [None]
  - HYPERTENSION [None]
  - SHUNT OCCLUSION [None]
